FAERS Safety Report 7641920-4 (Version None)
Quarter: 2011Q3

REPORT INFORMATION
  Report Type: 
  Country: None (occurrence: None)
  Receive Date: 20110728
  Receipt Date: 20110725
  Transmission Date: 20111222
  Serious: Yes (Death)
  Sender: FDA-Public Use
  Company Number: CA-ROCHE-791891

PATIENT
  Age: 59 Year
  Sex: Male

DRUGS (7)
  1. VENLAFAXINE [Suspect]
     Dosage: FORM: CAPSULE- SUSTAINED RELEASE; DRUG NAME: VENLAFAXINE XR
     Route: 048
  2. OXYCODONE HCL [Suspect]
     Route: 048
  3. DIAZEPAM [Suspect]
     Route: 048
  4. ACETAMINOPHEN [Suspect]
     Route: 048
  5. TRAZODONE HCL [Suspect]
     Route: 048
  6. COCAINE [Suspect]
     Route: 045
  7. CODEINE SULFATE [Suspect]
     Route: 048

REACTIONS (2)
  - SUBSTANCE ABUSE [None]
  - MULTIPLE DRUG OVERDOSE [None]
